FAERS Safety Report 5565094-9 (Version None)
Quarter: 2007Q4

REPORT INFORMATION
  Report Type: 
  Country: None (occurrence: None)
  Receive Date: 20071213
  Receipt Date: 20071201
  Transmission Date: 20080405
  Serious: Yes (Other)
  Sender: FDA-Public Use
  Company Number: 230883J07USA

PATIENT
  Age: 57 Year
  Sex: Male

DRUGS (4)
  1. REBIF [Suspect]
     Indication: MULTIPLE SCLEROSIS
     Dosage: 44 MCG, 3 IN 1 WEEKS, SUBCUTANEOUS
     Route: 058
     Dates: start: 20070702
  2. DETROL LA [Concomitant]
  3. GABAPENTIN [Concomitant]
  4. PLAVIX [Concomitant]

REACTIONS (5)
  - ASTHENIA [None]
  - CAROTID ARTERY OCCLUSION [None]
  - DIZZINESS [None]
  - DYSPNOEA EXERTIONAL [None]
  - FATIGUE [None]
